FAERS Safety Report 8759596 (Version 2)
Quarter: 2012Q4

REPORT INFORMATION
  Report Type: 
  Country: US (occurrence: US)
  Receive Date: 20120829
  Receipt Date: 20120906
  Transmission Date: 20130627
  Serious: Yes (Hospitalization)
  Sender: FDA-Public Use
  Company Number: US-ACTELION-A-NJ2012-70474

PATIENT
  Age: 74 Year
  Sex: Male

DRUGS (6)
  1. VELETRI [Suspect]
     Indication: PULMONARY ARTERIAL HYPERTENSION
     Dosage: 8 ng/kg, per min
     Route: 041
     Dates: start: 20120529
  2. TRACLEER [Concomitant]
     Indication: PULMONARY ARTERIAL HYPERTENSION
     Dosage: 125 mg, bid
     Route: 048
     Dates: start: 20090917
  3. VENTAVIS [Concomitant]
     Indication: PULMONARY ARTERIAL HYPERTENSION
     Dosage: UNK, 6 times a day
     Route: 055
     Dates: start: 20120705
  4. ADCIRCA [Concomitant]
  5. PRADAXA [Concomitant]
  6. ASPIRIN [Concomitant]

REACTIONS (3)
  - Cardiac failure congestive [Recovering/Resolving]
  - Dyspnoea [Recovering/Resolving]
  - Pericardial effusion [Recovering/Resolving]
